FAERS Safety Report 19483059 (Version 1)
Quarter: 2021Q3

REPORT INFORMATION
  Report Type: Spontaneous
  Country: GB (occurrence: GB)
  Receive Date: 20210701
  Receipt Date: 20210701
  Transmission Date: 20211014
  Serious: Yes (Other)
  Sender: FDA-Public Use
  Company Number: GB-PFIZER INC-2021735376

PATIENT
  Age: 28 Year
  Sex: Male

DRUGS (4)
  1. NALOXONE HCL [Suspect]
     Active Substance: NALOXONE HYDROCHLORIDE
     Dosage: 800 UG
     Route: 042
  2. COCAINE [Suspect]
     Active Substance: COCAINE
     Dosage: UNK
  3. NALOXONE HCL [Suspect]
     Active Substance: NALOXONE HYDROCHLORIDE
     Dosage: 1200 MG
  4. HEROIN [Suspect]
     Active Substance: DIAMORPHINE
     Dosage: UNK

REACTIONS (2)
  - Cardio-respiratory arrest [Recovered/Resolved]
  - Hyperkalaemia [Unknown]
